FAERS Safety Report 17001902 (Version 1)
Quarter: 2019Q4

REPORT INFORMATION
  Report Type: Spontaneous
  Country: US (occurrence: US)
  Receive Date: 20191106
  Receipt Date: 20191106
  Transmission Date: 20200122
  Serious: No
  Sender: FDA-Public Use
  Company Number: US-PFIZER INC-2019475186

PATIENT
  Age: 74 Year
  Sex: Male

DRUGS (1)
  1. IBRANCE [Suspect]
     Active Substance: PALBOCICLIB
     Indication: BREAST CANCER MALE
     Dosage: 75 MG, DAILY (ON DAYS 1 THROUGH 7 AND 15 TI)
     Route: 048

REACTIONS (1)
  - Pruritus [Unknown]
